FAERS Safety Report 6925842-X (Version None)
Quarter: 2010Q3

REPORT INFORMATION
  Report Type: 
  Country: None (occurrence: None)
  Receive Date: 20100816
  Receipt Date: 20100811
  Transmission Date: 20110219
  Serious: Yes (Other)
  Sender: FDA-Public Use
  Company Number: CHPA2010US12377

PATIENT
  Age: 46 Year
  Sex: Female
  Weight: 63.492 kg

DRUGS (2)
  1. PREVACID 24 HR [Suspect]
     Indication: DYSPEPSIA
     Dosage: 15 MG, QD
     Route: 048
     Dates: start: 20100729
  2. LEVOTHYROXINE [Concomitant]
     Indication: THYROID DISORDER
     Dosage: 0.5 DF, QD
     Route: 048
     Dates: start: 20100101

REACTIONS (2)
  - ABDOMINAL PAIN [None]
  - VOMITING [None]
